FAERS Safety Report 12074931 (Version 1)
Quarter: 2016Q1

REPORT INFORMATION
  Report Type: Spontaneous
  Country: FR (occurrence: FR)
  Receive Date: 20160212
  Receipt Date: 20160212
  Transmission Date: 20160526
  Serious: Yes (Other)
  Sender: FDA-Public Use
  Company Number: FR-PFIZER INC-2016035486

PATIENT
  Age: 3 Year
  Sex: Male
  Weight: 16 kg

DRUGS (10)
  1. CLINDAMYCIN HCL [Suspect]
     Active Substance: CLINDAMYCIN HYDROCHLORIDE
     Dosage: UNK
  2. TIORFAN [Concomitant]
     Active Substance: RACECADOTRIL
     Indication: COUGH
     Dosage: UNK
     Dates: start: 20151215
  3. FLUIMUCIL [Concomitant]
     Active Substance: ACETYLCYSTEINE
     Indication: COUGH
     Dosage: UNK
     Dates: start: 20151215
  4. FLUIMUCIL [Concomitant]
     Active Substance: ACETYLCYSTEINE
     Indication: PYREXIA
  5. CHILDRENS ADVIL [Concomitant]
     Active Substance: IBUPROFEN
     Indication: PYREXIA
  6. CHILDRENS ADVIL [Concomitant]
     Active Substance: IBUPROFEN
     Indication: COUGH
     Dosage: 1 DF, EVERY 6 HOURS
     Route: 048
     Dates: start: 20151215, end: 20151217
  7. DOLIPRANE [Concomitant]
     Active Substance: ACETAMINOPHEN
     Indication: COUGH
     Dosage: UNK
     Dates: start: 20151215
  8. DOLIPRANE [Concomitant]
     Active Substance: ACETAMINOPHEN
     Indication: PYREXIA
  9. TIORFAN [Concomitant]
     Active Substance: RACECADOTRIL
     Indication: PYREXIA
  10. AUGMENTIN [Suspect]
     Active Substance: AMOXICILLIN\CLAVULANATE POTASSIUM
     Dosage: UNK

REACTIONS (3)
  - Metabolic acidosis [Recovered/Resolved]
  - Rash [Recovered/Resolved]
  - Inflammation [Recovered/Resolved]
